FAERS Safety Report 7151889-7 (Version None)
Quarter: 2010Q4

REPORT INFORMATION
  Report Type: 
  Country: None (occurrence: None)
  Receive Date: 20101210
  Receipt Date: 20101202
  Transmission Date: 20110411
  Serious: Yes (Other)
  Sender: FDA-Public Use
  Company Number: US-ABBOTT-10P-163-0689512-00

PATIENT
  Sex: Male
  Weight: 108.96 kg

DRUGS (6)
  1. LUPRON DEPOT [Suspect]
     Indication: PROSTATE CANCER
     Dates: start: 20030101
  2. METOPROLOL [Concomitant]
     Indication: HYPERTENSION
  3. MEGESTROL ACETATE [Concomitant]
     Indication: HOT FLUSH
  4. SIMVASTATIN [Concomitant]
     Indication: BLOOD CHOLESTEROL INCREASED
  5. CLONAZEPAM [Concomitant]
     Indication: ANXIETY
  6. VITAMIN TAB [Concomitant]
     Indication: VITAMIN SUPPLEMENTATION

REACTIONS (15)
  - BREAST ENLARGEMENT [None]
  - BREAST MASS [None]
  - CHEST PAIN [None]
  - CORONARY ARTERY OCCLUSION [None]
  - DIZZINESS [None]
  - DRUG DISPENSING ERROR [None]
  - DYSPNOEA [None]
  - FATIGUE [None]
  - HOT FLUSH [None]
  - PAIN IN EXTREMITY [None]
  - PAIN IN JAW [None]
  - PRODUCT CONTAINER ISSUE [None]
  - PROSTATIC SPECIFIC ANTIGEN INCREASED [None]
  - SOMNOLENCE [None]
  - WEIGHT INCREASED [None]
